FAERS Safety Report 25108907 (Version 3)
Quarter: 2025Q3

REPORT INFORMATION
  Report Type: Spontaneous
  Country: US (occurrence: US)
  Receive Date: 20250322
  Receipt Date: 20250805
  Transmission Date: 20251021
  Serious: No
  Sender: SANOFI AVENTIS
  Company Number: US-SA-2025SA083990

PATIENT
  Age: 71 Year
  Sex: Male

DRUGS (1)
  1. DUPIXENT [Suspect]
     Active Substance: DUPILUMAB
     Indication: Dermatitis atopic
     Dosage: 300 MG, QOW; ROUTE SELF INJECTION
     Dates: start: 202409, end: 2025

REACTIONS (3)
  - Ocular hyperaemia [Unknown]
  - Dermatitis atopic [Unknown]
  - Drug ineffective [Unknown]
